FAERS Safety Report 24680582 (Version 1)
Quarter: 2024Q4

REPORT INFORMATION
  Report Type: Spontaneous
  Country: GB (occurrence: GB)
  Receive Date: 20241129
  Receipt Date: 20241129
  Transmission Date: 20250114
  Serious: Yes (Other)
  Sender: NOVO NORDISK
  Company Number: GB-MHRA-TPP5133687C4213942YC1731663642382

PATIENT
  Age: 31 Year
  Sex: Female
  Weight: 64 kg

DRUGS (9)
  1. SEMAGLUTIDE [Suspect]
     Active Substance: SEMAGLUTIDE
     Indication: Product used for unknown indication
     Dosage: UNK
  2. MELATONIN [Concomitant]
     Active Substance: MELATONIN
     Dosage: TAKE ONE AT NIGHT
     Dates: start: 20240917, end: 20241007
  3. PROPRANOLOL [Concomitant]
     Active Substance: PROPRANOLOL HYDROCHLORIDE
     Dosage: TAKE ONE UP TO 3 TIMES/DAY
     Dates: start: 20241029
  4. PROMETHAZINE HYDROCHLORIDE [Concomitant]
     Active Substance: PROMETHAZINE HYDROCHLORIDE
     Dosage: TAKE ONE AT NIGHT WHEN REQUIRED
     Dates: start: 20241114
  5. BENZOYL PEROXIDE [Concomitant]
     Active Substance: BENZOYL PEROXIDE
     Dosage: APPLY ONCE DAILY AT NIGHT
     Dates: start: 20241113, end: 20241114
  6. ALBUTEROL [Concomitant]
     Active Substance: ALBUTEROL
     Dosage: INHALE 2 DOSES AS NEEDED(2 DF)
     Route: 055
     Dates: start: 20200324
  7. CITALOPRAM [Concomitant]
     Active Substance: CITALOPRAM
     Indication: Ill-defined disorder
     Dosage: TAKE ONE TABLET ONCE DAILY
     Dates: start: 20220926, end: 20241007
  8. THIAMINE [Concomitant]
     Active Substance: THIAMINE
     Dosage: TAKE ONE TWICE A DAY
     Dates: start: 20230811
  9. EASYHALER [Concomitant]
     Dosage: INHALE ONE PUFF TWICE A DAY
     Route: 055
     Dates: start: 20231003

REACTIONS (5)
  - Starvation [Recovering/Resolving]
  - Haematemesis [Recovering/Resolving]
  - Lactic acidosis [Recovering/Resolving]
  - Ketosis [Unknown]
  - Dehydration [Unknown]
